FAERS Safety Report 16026534 (Version 1)
Quarter: 2019Q1

REPORT INFORMATION
  Report Type: Spontaneous
  Country: US (occurrence: US)
  Receive Date: 20190302
  Receipt Date: 20190302
  Transmission Date: 20190418
  Serious: Yes (Disabling)
  Sender: FDA-Public Use
  Company Number: US-TARO-2018TAR00869

PATIENT
  Sex: Female

DRUGS (4)
  1. LAMOTRIGINE (ZYDUS) [Suspect]
     Active Substance: LAMOTRIGINE
     Dosage: UNK
     Dates: start: 2014, end: 2014
  2. LAMOTRIGINE TABLETS 200 MG [Suspect]
     Active Substance: LAMOTRIGINE
     Dosage: 200 MG, 1X/DAY
     Dates: start: 2014
  3. LAMOTRIGINE TABLETS 200 MG [Suspect]
     Active Substance: LAMOTRIGINE
     Dosage: UNK
     Dates: start: 2014, end: 2014
  4. LAMOTRIGINE (ZYDUS) [Suspect]
     Active Substance: LAMOTRIGINE
     Dosage: 200 MG, 1X/DAY
     Dates: start: 2014

REACTIONS (1)
  - Diplopia [Not Recovered/Not Resolved]

NARRATIVE: CASE EVENT DATE: 2017
